FAERS Safety Report 8274233-0 (Version None)
Quarter: 2012Q2

REPORT INFORMATION
  Report Type: 
  Country: None (occurrence: None)
  Receive Date: 20120411
  Receipt Date: 20120405
  Transmission Date: 20120825
  Serious: Yes (Life-Threatening, Hospitalization, Other)
  Sender: FDA-Public Use
  Company Number: US-BAYER-2012-003064

PATIENT
  Age: 68 Year
  Sex: Female

DRUGS (2)
  1. GADAVIST [Suspect]
     Indication: NUCLEAR MAGNETIC RESONANCE IMAGING BRAIN
     Dosage: 8 ML, ONCE
     Dates: start: 20120110, end: 20120110
  2. AVASTIN [Concomitant]
     Indication: COLON CANCER
     Dosage: UNK

REACTIONS (7)
  - CARDIO-RESPIRATORY ARREST [None]
  - OROPHARYNGEAL DISCOMFORT [None]
  - CARDIAC ARREST [None]
  - SNEEZING [None]
  - RESPIRATORY ARREST [None]
  - LOSS OF CONSCIOUSNESS [None]
  - APHASIA [None]
